FAERS Safety Report 6268386-3 (Version None)
Quarter: 2009Q3

REPORT INFORMATION
  Report Type: 
  Country: None (occurrence: None)
  Receive Date: 20090713
  Receipt Date: 20090713
  Transmission Date: 20100115
  Serious: Yes (Hospitalization)
  Sender: FDA-Public Use
  Company Number: None

PATIENT
  Sex: Female
  Weight: 62.7 kg

DRUGS (1)
  1. TC-99M SESTAMIBI COVIDIEN [Suspect]
     Indication: CHEST PAIN
     Dosage: 25 MCI UNIT DOSE 1 X USE IV
     Route: 042
     Dates: start: 20090708, end: 20090708

REACTIONS (4)
  - ADVERSE DRUG REACTION [None]
  - PRURITUS GENERALISED [None]
  - THROAT TIGHTNESS [None]
  - URTICARIA [None]
